FAERS Safety Report 23046630 (Version 1)
Quarter: 2023Q4

REPORT INFORMATION
  Report Type: Spontaneous
  Country: CZ (occurrence: CZ)
  Receive Date: 20231009
  Receipt Date: 20231009
  Transmission Date: 20240109
  Serious: Yes (Other)
  Sender: FDA-Public Use
  Company Number: CZ-AMGEN-CZESP2023175091

PATIENT
  Age: 33 Year
  Sex: Female

DRUGS (7)
  1. TRASTUZUMAB [Suspect]
     Active Substance: TRASTUZUMAB
     Indication: Breast cancer
     Dosage: 600 MILLIGRAM PER SQUARE METER, Q3WK
     Route: 058
     Dates: start: 2012
  2. DOXORUBICIN [Concomitant]
     Active Substance: DOXORUBICIN
     Dosage: 60 MILLIGRAM PER SQUARE METER
     Dates: start: 2012
  3. CYCLOPHOSPHAMIDE [Concomitant]
     Active Substance: CYCLOPHOSPHAMIDE
     Dosage: 600 MILLIGRAM PER SQUARE METER
     Route: 065
     Dates: start: 2012
  4. PACLITAXEL [Concomitant]
     Active Substance: PACLITAXEL
     Dosage: 90 MILLIGRAM PER SQUARE METER
     Dates: start: 2012
  5. LETROZOLE [Concomitant]
     Active Substance: LETROZOLE
     Dosage: UNK FOR FIVE YEARS
     Route: 065
  6. GOSERELIN [Concomitant]
     Active Substance: GOSERELIN
     Dosage: UNK
     Route: 065
     Dates: start: 2012
  7. TAMOXIFEN [Concomitant]
     Active Substance: TAMOXIFEN
     Dosage: UNK
     Route: 065
     Dates: start: 2012

REACTIONS (7)
  - Metastases to lung [Unknown]
  - Metastases to the mediastinum [Unknown]
  - Metastases to pelvis [Unknown]
  - Metastases to pleura [Unknown]
  - Biliary colic [Unknown]
  - Off label use [Unknown]
  - Upper respiratory tract infection [Unknown]

NARRATIVE: CASE EVENT DATE: 20190101
